FAERS Safety Report 12083894 (Version 1)
Quarter: 2016Q1

REPORT INFORMATION
  Report Type: Spontaneous
  Country: US (occurrence: None)
  Receive Date: 20160216
  Receipt Date: 20160216
  Transmission Date: 20160526
  Serious: Yes (Hospitalization)
  Sender: FDA-Public Use
  Company Number: None

PATIENT
  Age: 63 Year
  Sex: Male
  Weight: 81.1 kg

DRUGS (1)
  1. PONATINIB 45MG [Suspect]
     Active Substance: PONATINIB
     Indication: ADENOCARCINOMA PANCREAS
     Route: 048
     Dates: start: 20160120, end: 20160201

REACTIONS (3)
  - Dyspnoea [None]
  - Orthopnoea [None]
  - Venous thrombosis [None]

NARRATIVE: CASE EVENT DATE: 20160211
